FAERS Safety Report 4922224-7 (Version None)
Quarter: 2006Q1

REPORT INFORMATION
  Report Type: 
  Country: None (occurrence: None)
  Receive Date: 20060224
  Receipt Date: 20041021
  Transmission Date: 20060701
  Serious: Yes (Life-Threatening, Hospitalization, Disabling)
  Sender: FDA-Public Use
  Company Number: US-MERCK-0410USA03366

PATIENT
  Age: 41 Year
  Sex: Male

DRUGS (12)
  1. VIOXX [Suspect]
     Indication: BONE PAIN
     Route: 048
     Dates: start: 20020501, end: 20040405
  2. TRICOR [Concomitant]
     Route: 065
  3. CRESTOR [Concomitant]
     Route: 065
  4. PLAVIX [Concomitant]
     Route: 065
  5. PRINIVIL [Concomitant]
     Route: 065
  6. NEXIUM [Concomitant]
     Route: 065
  7. NORVASC [Concomitant]
     Route: 065
  8. IMDUR [Concomitant]
     Route: 065
  9. METOPROLOL [Concomitant]
     Route: 065
  10. ASPIRIN [Concomitant]
     Route: 065
  11. NITROGLYCERIN [Concomitant]
     Route: 065
  12. ULTRACET [Concomitant]
     Route: 065

REACTIONS (10)
  - ABDOMINAL PAIN UPPER [None]
  - ANGINA PECTORIS [None]
  - ANXIETY [None]
  - CARDIAC DISORDER [None]
  - CHEST PAIN [None]
  - CORONARY ARTERY DISEASE [None]
  - DEPRESSION [None]
  - DIZZINESS [None]
  - MYOCARDIAL INFARCTION [None]
  - TOBACCO ABUSE [None]
